APPROVED DRUG PRODUCT: KETOROLAC TROMETHAMINE
Active Ingredient: KETOROLAC TROMETHAMINE
Strength: 30MG/ML **Federal Register determination that product was not discontinued or withdrawn for safety or effectiveness reasons**
Dosage Form/Route: INJECTABLE;INJECTION
Application: A075228 | Product #001
Applicant: HIKMA PHARMACEUTICALS USA INC
Approved: Apr 26, 1999 | RLD: No | RS: No | Type: DISCN